FAERS Safety Report 5389329-0 (Version None)
Quarter: 2007Q3

REPORT INFORMATION
  Report Type: 
  Country: None (occurrence: None)
  Receive Date: 20070703
  Receipt Date: 20070512
  Transmission Date: 20080115
  Serious: No
  Sender: FDA-Public Use
  Company Number: 2006PV009159

PATIENT
  Age: 81 Year
  Sex: Male
  Weight: 63.5036 kg

DRUGS (8)
  1. SYMLIN [Suspect]
     Indication: TYPE 1 DIABETES MELLITUS
     Dosage: 6 MCG; SC
     Route: 058
     Dates: start: 20070512, end: 20070512
  2. SYMLIN [Suspect]
     Indication: TYPE 1 DIABETES MELLITUS
     Dosage: 15 MCG;TID;SC : 6 MCG;SC
     Route: 058
     Dates: start: 20050101, end: 20050101
  3. SYMLIN [Suspect]
     Indication: TYPE 1 DIABETES MELLITUS
     Dosage: 15 MCG;TID;SC : 6 MCG;SC
     Route: 058
     Dates: start: 20060223, end: 20060223
  4. LANTUS [Concomitant]
  5. HUMULIN 70/30 [Concomitant]
  6. HUMALOG [Concomitant]
  7. LANTUS [Concomitant]
  8. APIDRA [Concomitant]

REACTIONS (1)
  - BLOOD GLUCOSE INCREASED [None]
